FAERS Safety Report 8795591 (Version 2)
Quarter: 2015Q2

REPORT INFORMATION
  Report Type: Report from Study
  Country: US (occurrence: US)
  Receive Date: 20120917
  Receipt Date: 20150626
  Transmission Date: 20150821
  Serious: Yes (Death, Hospitalization)
  Sender: FDA-Public Use
  Company Number: US-ROCHE-1128655

PATIENT
  Age: 54 Year
  Sex: Female

DRUGS (23)
  1. BENADRYL [Concomitant]
     Active Substance: DIPHENHYDRAMINE HYDROCHLORIDE
     Route: 042
  2. XELODA [Concomitant]
     Active Substance: CAPECITABINE
     Route: 048
  3. ALOXI [Concomitant]
     Active Substance: PALONOSETRON HYDROCHLORIDE
     Route: 065
  4. PERCOCET [Concomitant]
     Active Substance: ACETAMINOPHEN\OXYCODONE HYDROCHLORIDE
  5. FENTANYL. [Concomitant]
     Active Substance: FENTANYL
     Route: 065
  6. LEUCOVORIN [Concomitant]
     Active Substance: LEUCOVORIN
     Route: 042
  7. ZAROXOLYN [Concomitant]
     Active Substance: METOLAZONE
     Route: 065
  8. CAPTOPRIL. [Concomitant]
     Active Substance: CAPTOPRIL
     Route: 065
  9. AVASTIN [Suspect]
     Active Substance: BEVACIZUMAB
     Indication: PANCREATIC CARCINOMA
     Route: 042
     Dates: start: 20061214
  10. AVASTIN [Suspect]
     Active Substance: BEVACIZUMAB
     Route: 042
  11. DECADRON [Concomitant]
     Active Substance: DEXAMETHASONE
     Route: 042
  12. SOLU-MEDROL [Concomitant]
     Active Substance: METHYLPREDNISOLONE SODIUM SUCCINATE
     Route: 042
  13. NEUPOGEN [Concomitant]
     Active Substance: FILGRASTIM
     Route: 065
  14. OXYCONTIN [Concomitant]
     Active Substance: OXYCODONE HYDROCHLORIDE
     Route: 065
  15. VITAMIN B12 [Concomitant]
     Active Substance: CYANOCOBALAMIN
     Route: 065
  16. FLUOROURACIL. [Concomitant]
     Active Substance: FLUOROURACIL
     Route: 042
  17. LASIX [Concomitant]
     Active Substance: FUROSEMIDE
     Route: 065
  18. ZOMETA [Concomitant]
     Active Substance: ZOLEDRONIC ACID
     Route: 042
  19. GEMZAR [Concomitant]
     Active Substance: GEMCITABINE HYDROCHLORIDE
     Route: 042
  20. OXYCODONE [Concomitant]
     Active Substance: OXYCODONE
     Route: 065
  21. OXALIPLATIN. [Concomitant]
     Active Substance: OXALIPLATIN
     Route: 042
  22. PROCRIT [Concomitant]
     Active Substance: ERYTHROPOIETIN
     Route: 058
  23. INFED [Concomitant]
     Active Substance: IRON DEXTRAN
     Route: 042

REACTIONS (17)
  - Metastases to liver [Unknown]
  - Cough [Unknown]
  - Off label use [Unknown]
  - Constipation [Unknown]
  - Dyspnoea [Unknown]
  - Pulmonary embolism [Unknown]
  - Oedema peripheral [Unknown]
  - Peripheral swelling [Unknown]
  - Pyrexia [Unknown]
  - Pain [Unknown]
  - Arthralgia [Unknown]
  - Sleep disorder [Unknown]
  - Back pain [Unknown]
  - Death [Fatal]
  - Epistaxis [Unknown]
  - Erythema [Unknown]
  - Urogenital disorder [Unknown]

NARRATIVE: CASE EVENT DATE: 20070913
